FAERS Safety Report 5312413-4 (Version None)
Quarter: 2007Q2

REPORT INFORMATION
  Report Type: 
  Country: None (occurrence: None)
  Receive Date: 20070430
  Receipt Date: 20061016
  Transmission Date: 20071010
  Serious: No
  Sender: FDA-Public Use
  Company Number: 2006UW19931

PATIENT
  Age: 78 Year
  Sex: Female
  Weight: 70.8 kg

DRUGS (8)
  1. NEXIUM [Suspect]
     Indication: GASTROOESOPHAGEAL REFLUX DISEASE
     Route: 048
     Dates: start: 20060101
  2. NEXIUM [Suspect]
     Indication: ERUCTATION
     Route: 048
     Dates: start: 20060101
  3. NEXIUM [Suspect]
     Route: 048
     Dates: start: 20060601
  4. NEXIUM [Suspect]
     Route: 048
     Dates: start: 20060601
  5. ASPIRIN [Concomitant]
  6. ATENOLOL [Concomitant]
  7. DIOVAN HCT [Concomitant]
  8. LIPITOR [Concomitant]

REACTIONS (1)
  - BURNING SENSATION [None]
